FAERS Safety Report 16355970 (Version 3)
Quarter: 2019Q3

REPORT INFORMATION
  Report Type: Report from Study
  Country: US (occurrence: US)
  Receive Date: 20190526
  Receipt Date: 20190731
  Transmission Date: 20191004
  Serious: Yes (Hospitalization, Other)
  Sender: FDA-Public Use
  Company Number: US-BIOGEN-2019BI00734649

PATIENT
  Sex: Male

DRUGS (1)
  1. TYSABRI [Suspect]
     Active Substance: NATALIZUMAB
     Indication: MULTIPLE SCLEROSIS
     Dosage: INFUSED OVER 1 HOUR
     Route: 065
     Dates: start: 20181117, end: 20190310

REACTIONS (8)
  - Intestinal obstruction [Unknown]
  - Abdominal pain [Unknown]
  - Septic shock [Unknown]
  - Impaired healing [Unknown]
  - Neurological procedural complication [Unknown]
  - Post procedural complication [Unknown]
  - Appendicitis [Unknown]
  - Procedural complication [Unknown]
